FAERS Safety Report 11528708 (Version 1)
Quarter: 2015Q3

REPORT INFORMATION
  Report Type: Spontaneous
  Country: US (occurrence: US)
  Receive Date: 20150921
  Receipt Date: 20150921
  Transmission Date: 20151125
  Serious: No
  Sender: FDA-Public Use
  Company Number: US-TEVA-532999USA

PATIENT
  Sex: Male
  Weight: 71.28 kg

DRUGS (3)
  1. PROVIGIL [Suspect]
     Active Substance: MODAFINIL
     Indication: NARCOLEPSY
     Dates: start: 200005
  2. PROVIGIL [Suspect]
     Active Substance: MODAFINIL
     Indication: CATAPLEXY
  3. NADOLOL. [Concomitant]
     Active Substance: NADOLOL
     Indication: ARRHYTHMIA

REACTIONS (3)
  - Weight increased [Not Recovered/Not Resolved]
  - Product use issue [Unknown]
  - Drug administered to patient of inappropriate age [Unknown]
